FAERS Safety Report 25420699 (Version 1)
Quarter: 2025Q2

REPORT INFORMATION
  Report Type: Spontaneous
  Country: US (occurrence: US)
  Receive Date: 20250611
  Receipt Date: 20250611
  Transmission Date: 20250717
  Serious: No
  Sender: ELI LILLY AND COMPANY
  Company Number: US-ELI_LILLY_AND_COMPANY-US202506006472

PATIENT
  Age: 53 Year
  Sex: Female

DRUGS (1)
  1. ZEPBOUND [Suspect]
     Active Substance: TIRZEPATIDE
     Indication: Weight control
     Route: 065

REACTIONS (14)
  - Brain fog [Unknown]
  - Confusional state [Unknown]
  - Back pain [Unknown]
  - Pyrexia [Unknown]
  - Insomnia [Unknown]
  - Night sweats [Unknown]
  - Palpitations [Unknown]
  - Dry mouth [Unknown]
  - Drug ineffective [Unknown]
  - Abdominal distension [Unknown]
  - Dizziness [Unknown]
  - Abdominal pain [Unknown]
  - Nausea [Unknown]
  - Constipation [Unknown]
